FAERS Safety Report 21295083 (Version 2)
Quarter: 2022Q4

REPORT INFORMATION
  Report Type: Spontaneous
  Country: JP (occurrence: None)
  Receive Date: 20220905
  Receipt Date: 20221114
  Transmission Date: 20230113
  Serious: Yes (Death, Hospitalization, Other)
  Sender: FDA-Public Use
  Company Number: 2022A302466

PATIENT
  Age: 73 Year
  Sex: Male
  Weight: 65 kg

DRUGS (7)
  1. LYNPARZA [Suspect]
     Active Substance: OLAPARIB
     Indication: Hormone-refractory prostate cancer
     Route: 048
     Dates: start: 20220725, end: 20220728
  2. PREDNISOLONE [Concomitant]
     Active Substance: PREDNISOLONE
     Dosage: NUMBER OF SEPARATE DOSAGES UNKNOWN
     Route: 048
  3. BIFIDOBACTERIUM SPP. [Concomitant]
     Active Substance: BIFIDOBACTERIUM SPP.
     Dosage: DOSE UNKNOWN
     Route: 048
  4. HERBALS [Concomitant]
     Active Substance: HERBALS
     Dosage: DOSE UNKNOWN
     Route: 065
  5. LOPERAMIDE HYDROCHLORIDE [Concomitant]
     Active Substance: LOPERAMIDE HYDROCHLORIDE
     Dosage: DOSE UNKNOWN, AS REQUIRED
     Route: 048
  6. CARBAZOCHROME SULFONATE NA [Concomitant]
     Dosage: DOSE UNKNOWN
     Route: 048
  7. CARBOHYDRATES\FATTY ACIDS\MINERALS\PROTEIN\VITAMINS [Concomitant]
     Active Substance: CARBOHYDRATES\FATTY ACIDS\MINERALS\PROTEIN\VITAMINS
     Dosage: DOSE UNKNOWN
     Route: 065

REACTIONS (12)
  - Dyspnoea [Fatal]
  - Hepatitis fulminant [Not Recovered/Not Resolved]
  - Septic shock [Unknown]
  - Hepatic failure [Unknown]
  - Acute kidney injury [Unknown]
  - Acidosis [Recovering/Resolving]
  - Blood pressure decreased [Unknown]
  - Altered state of consciousness [Not Recovered/Not Resolved]
  - SARS-CoV-2 test positive [Unknown]
  - Coagulopathy [Not Recovered/Not Resolved]
  - White blood cell count increased [Unknown]
  - Product dose omission issue [Unknown]

NARRATIVE: CASE EVENT DATE: 20220728
